FAERS Safety Report 11109599 (Version 1)
Quarter: 2015Q2

REPORT INFORMATION
  Report Type: Spontaneous
  Country: US (occurrence: None)
  Receive Date: 20150512
  Receipt Date: 20150512
  Transmission Date: 20150821
  Serious: Yes (Other)
  Sender: FDA-Public Use
  Company Number: None

PATIENT
  Age: 62 Year
  Sex: Male
  Weight: 90.72 kg

DRUGS (2)
  1. ZOLEDRONIC ACID [Suspect]
     Active Substance: ZOLEDRONIC ACID
     Indication: BONE CANCER
     Dosage: FREQUENCY: EVERY MONTHS TAKEN, INJECTION
     Dates: start: 201403, end: 201410
  2. BYSTOLIC [Concomitant]
     Active Substance: NEBIVOLOL HYDROCHLORIDE

REACTIONS (6)
  - Chest pain [None]
  - Myocardial infarction [None]
  - Vein disorder [None]
  - Swelling [None]
  - Heart rate increased [None]
  - Aortic dilatation [None]

NARRATIVE: CASE EVENT DATE: 201409
